FAERS Safety Report 5087040-7 (Version None)
Quarter: 2006Q3

REPORT INFORMATION
  Report Type: 
  Country: None (occurrence: None)
  Receive Date: 20060821
  Receipt Date: 20060808
  Transmission Date: 20061208
  Serious: Yes (Other)
  Sender: FDA-Public Use
  Company Number: 2006099340

PATIENT

DRUGS (3)
  1. SERTRALINE [Suspect]
     Indication: DRUG USE FOR UNKNOWN INDICATION
  2. LINEZOLID [Suspect]
     Indication: DRUG USE FOR UNKNOWN INDICATION
  3. AMITRIPTYLINE               (AMITRIPYTLINE) [Suspect]
     Indication: DRUG USE FOR UNKNOWN INDICATION

REACTIONS (1)
  - SEROTONIN SYNDROME [None]
